FAERS Safety Report 4606615-X (Version None)
Quarter: 2005Q2

REPORT INFORMATION
  Report Type: 
  Country: None (occurrence: None)
  Receive Date: 20050223
  Receipt Date: 20040427
  Transmission Date: 20051028
  Serious: Yes (Other)
  Sender: FDA-Public Use
  Company Number: WAES 0404USA02359

PATIENT
  Age: 89 Year
  Sex: Male
  Weight: 73.4827 kg

DRUGS (5)
  1. ZOCOR [Suspect]
     Indication: DYSLIPIDAEMIA
     Dosage: 40 MG/HS/PO
     Route: 048
     Dates: end: 20040327
  2. MONOPRIL [Concomitant]
  3. ACETAMINOPHEN [Concomitant]
  4. CHLORTHALIDONE [Concomitant]
  5. METOPROLOL [Concomitant]

REACTIONS (3)
  - ASTHENIA [None]
  - HEPATIC ENZYME INCREASED [None]
  - MYALGIA [None]
